FAERS Safety Report 10017460 (Version 1)
Quarter: 2014Q1

REPORT INFORMATION
  Report Type: Spontaneous
  Country: US (occurrence: None)
  Receive Date: 20140312
  Receipt Date: 20140312
  Transmission Date: 20141002
  Serious: Yes (Congenital Anomaly)
  Sender: FDA-Public Use
  Company Number: POI0573201400033

PATIENT
  Sex: Male

DRUGS (1)
  1. VENLAFAXINE EXTENDED-RELEASE TABLETS [Suspect]
     Dosage: TRANSPLACENTAL
     Route: 064

REACTIONS (1)
  - Hypospadias [None]
